FAERS Safety Report 15703916 (Version 1)
Quarter: 2018Q4

REPORT INFORMATION
  Report Type: Spontaneous
  Country: US (occurrence: US)
  Receive Date: 20181210
  Receipt Date: 20181210
  Transmission Date: 20190205
  Serious: Yes (Life-Threatening, Hospitalization, Other)
  Sender: FDA-Public Use
  Company Number: US-BAYER-2018-225525

PATIENT
  Age: 72 Year
  Sex: Male

DRUGS (5)
  1. CEFTRIAXONE. [Concomitant]
     Active Substance: CEFTRIAXONE
     Indication: UPPER GASTROINTESTINAL HAEMORRHAGE
     Dosage: UNK
  2. BAYER ASPIRIN [Suspect]
     Active Substance: ASPIRIN
     Indication: BACK PAIN
     Dosage: UNK
  3. IBUPROFEN. [Suspect]
     Active Substance: IBUPROFEN
     Indication: BACK PAIN
     Dosage: UNK
  4. OCTREOTIDE. [Concomitant]
     Active Substance: OCTREOTIDE
     Indication: UPPER GASTROINTESTINAL HAEMORRHAGE
     Dosage: UNK
  5. PANTOPRAZOLE [Concomitant]
     Active Substance: PANTOPRAZOLE
     Indication: UPPER GASTROINTESTINAL HAEMORRHAGE
     Dosage: UNK

REACTIONS (6)
  - Gastritis erosive [Recovering/Resolving]
  - Gastric ulcer haemorrhage [Recovering/Resolving]
  - Septic shock [Recovering/Resolving]
  - Upper gastrointestinal haemorrhage [Recovering/Resolving]
  - Labelled drug-drug interaction medication error [Recovering/Resolving]
  - Shock haemorrhagic [Recovering/Resolving]
